FAERS Safety Report 5922342-0 (Version None)
Quarter: 2008Q4

REPORT INFORMATION
  Report Type: 
  Country: None (occurrence: None)
  Receive Date: 20081017
  Receipt Date: 20081016
  Transmission Date: 20090506
  Serious: Yes (Hospitalization)
  Sender: FDA-Public Use
  Company Number: US-BRISTOL-MYERS SQUIBB COMPANY-14339816

PATIENT
  Age: 89 Year
  Sex: Female

DRUGS (6)
  1. IXEMPRA KIT [Suspect]
     Indication: BREAST CANCER METASTATIC
     Dosage: RE-INITIATED ON 22-OCT-2008
     Route: 042
     Dates: start: 20080818, end: 20080818
  2. CISPLATIN [Suspect]
     Dates: start: 20080821, end: 20080821
  3. LASIX [Concomitant]
  4. DECADRON [Concomitant]
     Dosage: 1 DOSAGE FORM = 20 (UNITS UNSPECIFIED)
  5. BENADRYL [Concomitant]
     Dosage: 1 DOSAGE FORM = 25 (UNITS UNSPECIFED).
  6. SODIUM CHLORIDE [Concomitant]

REACTIONS (3)
  - ASTHENIA [None]
  - ATAXIA [None]
  - FALL [None]
